FAERS Safety Report 18516683 (Version 1)
Quarter: 2020Q4

REPORT INFORMATION
  Report Type: Spontaneous
  Country: US (occurrence: US)
  Receive Date: 20201118
  Receipt Date: 20201118
  Transmission Date: 20210114
  Serious: No
  Sender: FDA-Public Use
  Company Number: None

PATIENT
  Age: 15 Year
  Sex: Female

DRUGS (6)
  1. MELATONIN 1MG [Concomitant]
  2. LAMOTRIGINE 200MG [Concomitant]
     Active Substance: LAMOTRIGINE
  3. CLONIDINE 0.1MG [Concomitant]
     Active Substance: CLONIDINE
  4. EPIDIOLEX [Suspect]
     Active Substance: CANNABIDIOL
     Indication: EPILEPSY
     Route: 048
     Dates: start: 20190625, end: 20201118
  5. CLOBAZAM 10MG [Concomitant]
     Active Substance: CLOBAZAM
  6. DIAMOX 250 MG [Concomitant]

REACTIONS (2)
  - Behaviour disorder [None]
  - Depression [None]

NARRATIVE: CASE EVENT DATE: 20201118
